FAERS Safety Report 19884647 (Version 1)
Quarter: 2021Q3

REPORT INFORMATION
  Report Type: Spontaneous
  Country: CN (occurrence: CN)
  Receive Date: 20210927
  Receipt Date: 20210927
  Transmission Date: 20211014
  Serious: Yes (Other)
  Sender: FDA-Public Use
  Company Number: CN-ORGANON-O2109CHN001777

PATIENT
  Age: 71 Year
  Sex: Male
  Weight: 65 kg

DRUGS (3)
  1. LIDOCAINE HYDROCHLORIDE. [Concomitant]
     Active Substance: LIDOCAINE HYDROCHLORIDE
     Indication: LUMBAR RADICULOPATHY
     Dosage: 3 ML, QD
     Dates: start: 20210909, end: 20210909
  2. COBAMAMIDE [Concomitant]
     Active Substance: COBAMAMIDE
     Indication: LUMBAR RADICULOPATHY
     Dosage: 1.5 MG, QD
     Route: 030
     Dates: start: 20210909, end: 20210909
  3. DIPROSPAN [Suspect]
     Active Substance: BETAMETHASONE DIPROPIONATE\BETAMETHASONE SODIUM PHOSPHATE
     Indication: LUMBAR RADICULOPATHY
     Dosage: 0.3 ML, QD
     Dates: start: 20210909, end: 20210909

REACTIONS (1)
  - Insomnia [Recovering/Resolving]

NARRATIVE: CASE EVENT DATE: 20210909
